FAERS Safety Report 14713147 (Version 1)
Quarter: 2018Q2

REPORT INFORMATION
  Report Type: Spontaneous
  Country: US (occurrence: US)
  Receive Date: 20180404
  Receipt Date: 20180404
  Transmission Date: 20180711
  Serious: No
  Sender: FDA-Public Use
  Company Number: US-PFIZER INC-2018135613

PATIENT
  Age: 41 Year
  Sex: Female
  Weight: 52.16 kg

DRUGS (1)
  1. GABAPENTIN. [Suspect]
     Active Substance: GABAPENTIN
     Dosage: UNK
     Dates: start: 2016

REACTIONS (4)
  - Thinking abnormal [Unknown]
  - Drug ineffective [Unknown]
  - Disorientation [Unknown]
  - Feeling drunk [Unknown]
